FAERS Safety Report 5005170-2 (Version None)
Quarter: 2006Q2

REPORT INFORMATION
  Report Type: 
  Country: None (occurrence: None)
  Receive Date: 20060518
  Receipt Date: 20051110
  Transmission Date: 20061013
  Serious: Yes (Hospitalization)
  Sender: FDA-Public Use
  Company Number: DE-BRISTOL-MYERS SQUIBB COMPANY-13177415

PATIENT
  Age: 64 Year
  Weight: 62 kg

DRUGS (8)
  1. CYCLOPHOSPHAMIDE [Suspect]
     Indication: BREAST CANCER
     Route: 042
     Dates: start: 20051020
  2. PACLITAXEL [Suspect]
     Indication: BREAST CANCER
     Route: 042
     Dates: start: 20050908, end: 20051006
  3. EPIRUBICIN [Suspect]
     Indication: BREAST CANCER
     Route: 042
     Dates: start: 20050728, end: 20050825
  4. NEORECORMON [Concomitant]
     Route: 058
     Dates: start: 20051103
  5. NEULASTA [Concomitant]
     Dates: start: 20051104
  6. UROMITEXAN [Concomitant]
     Route: 042
     Dates: start: 20051103, end: 20051103
  7. UROMITEXAN [Concomitant]
     Route: 048
     Dates: start: 20051103, end: 20051103
  8. CIPROBAY [Concomitant]
     Route: 048
     Dates: start: 20051107

REACTIONS (2)
  - LEUKOPENIA [None]
  - VISUAL ACUITY REDUCED [None]
